FAERS Safety Report 21099712 (Version 1)
Quarter: 2022Q3

REPORT INFORMATION
  Report Type: Spontaneous
  Country: US (occurrence: US)
  Receive Date: 20220719
  Receipt Date: 20220719
  Transmission Date: 20221027
  Serious: No
  Sender: FDA-Public Use
  Company Number: US-009507513-2207USA004876

PATIENT
  Age: 74 Year
  Sex: Male

DRUGS (7)
  1. NOXAFIL [Suspect]
     Active Substance: POSACONAZOLE
     Indication: Alternaria infection
     Dosage: 300 MILLIGRAM, DAILY
     Route: 048
  2. NOXAFIL [Suspect]
     Active Substance: POSACONAZOLE
     Indication: Mucosal infection
  3. AMPHOTERICIN B [Concomitant]
     Active Substance: AMPHOTERICIN B
     Indication: Alternaria infection
     Dosage: 5 MILLIGRAM/KILOGRAM
  4. AMPHOTERICIN B [Concomitant]
     Active Substance: AMPHOTERICIN B
     Indication: Mucosal infection
  5. ELTROMBOPAG [Concomitant]
     Active Substance: ELTROMBOPAG
     Indication: Aplastic anaemia
  6. TACROLIMUS [Concomitant]
     Active Substance: TACROLIMUS
     Indication: Aplastic anaemia
  7. VORICONAZOLE [Concomitant]
     Active Substance: VORICONAZOLE
     Dosage: 200 MILLIGRAM, TWICE DAILY

REACTIONS (1)
  - Product use in unapproved indication [Unknown]
